FAERS Safety Report 12714195 (Version 8)
Quarter: 2018Q2

REPORT INFORMATION
  Report Type: Spontaneous
  Country: US (occurrence: US)
  Receive Date: 20160905
  Receipt Date: 20180629
  Transmission Date: 20180711
  Serious: Yes (Death, Hospitalization, Other)
  Sender: FDA-Public Use
  Company Number: US-PFIZER INC-2016411242

PATIENT
  Age: 66 Year
  Sex: Male
  Weight: 90.72 kg

DRUGS (2)
  1. XELJANZ [Suspect]
     Active Substance: TOFACITINIB CITRATE
     Dosage: 5 MG, 1X/DAY
     Route: 048
     Dates: start: 201802
  2. XELJANZ [Suspect]
     Active Substance: TOFACITINIB CITRATE
     Indication: RHEUMATOID ARTHRITIS
     Dosage: 5 MG, 1X/DAY
     Route: 048
     Dates: end: 20180201

REACTIONS (6)
  - Pneumonia [Unknown]
  - Gait inability [Unknown]
  - Malaise [Recovered/Resolved]
  - Death [Fatal]
  - Infection [Unknown]
  - Product use issue [Unknown]

NARRATIVE: CASE EVENT DATE: 20180603
